FAERS Safety Report 15630479 (Version 1)
Quarter: 2018Q4

REPORT INFORMATION
  Report Type: Spontaneous
  Country: US (occurrence: US)
  Receive Date: 20181119
  Receipt Date: 20181119
  Transmission Date: 20190205
  Serious: No
  Sender: FDA-Public Use
  Company Number: US-ORIENT PHARMA-000008

PATIENT
  Age: 51 Year
  Sex: Female
  Weight: 109.77 kg

DRUGS (2)
  1. ARMOUR THYROID [Concomitant]
     Active Substance: THYROID, PORCINE
  2. CARISOPRODOL ORIENT [Suspect]
     Active Substance: CARISOPRODOL
     Indication: MUSCLE SPASMS
     Dosage: STRENGTH: 350 MG, STARTED 2 MONTHS AGO
     Route: 048

REACTIONS (2)
  - Swelling face [Recovering/Resolving]
  - Wheezing [Recovering/Resolving]
